FAERS Safety Report 5968217-2 (Version None)
Quarter: 2008Q4

REPORT INFORMATION
  Report Type: 
  Country: None (occurrence: None)
  Receive Date: 20081126
  Receipt Date: 20081119
  Transmission Date: 20090506
  Serious: Yes (Hospitalization)
  Sender: FDA-Public Use
  Company Number: B0544996A

PATIENT
  Age: 79 Year
  Sex: Male

DRUGS (7)
  1. VALTREX [Suspect]
     Indication: HERPES ZOSTER
     Dosage: 1000MG THREE TIMES PER DAY
     Route: 048
     Dates: start: 20081028
  2. AZELASTINE HCL [Concomitant]
     Indication: NASOPHARYNGITIS
     Dosage: 2MG PER DAY
     Route: 048
     Dates: start: 20081101
  3. MEDICON [Concomitant]
     Indication: NASOPHARYNGITIS
     Dosage: 90MG PER DAY
     Route: 048
     Dates: start: 20081101
  4. EMPYNASE P [Concomitant]
     Indication: NASOPHARYNGITIS
     Dosage: 54IU3 PER DAY
     Route: 048
     Dates: start: 20081101
  5. TRANSAMIN [Concomitant]
     Indication: NASOPHARYNGITIS
     Dosage: 750MG PER DAY
     Route: 048
     Dates: start: 20081101
  6. FLOMOX [Concomitant]
     Indication: NASOPHARYNGITIS
     Dosage: 300MG PER DAY
     Route: 048
     Dates: start: 20081101
  7. BIOFERMIN R [Concomitant]
     Indication: NASOPHARYNGITIS
     Route: 048
     Dates: start: 20081101

REACTIONS (3)
  - POLLAKIURIA [None]
  - SOMNOLENCE [None]
  - URINE OUTPUT INCREASED [None]
